FAERS Safety Report 4464009-4 (Version None)
Quarter: 2004Q4

REPORT INFORMATION
  Report Type: 
  Country: None (occurrence: None)
  Receive Date: 20041001
  Receipt Date: 20040922
  Transmission Date: 20050328
  Serious: Yes (Death, Hospitalization)
  Sender: FDA-Public Use
  Company Number: ES-ABBOTT-04P-144-0274168-00

PATIENT
  Age: 58 Year
  Sex: Male

DRUGS (6)
  1. KALETRA [Suspect]
     Indication: HIV INFECTION
     Route: 048
     Dates: start: 20030512
  2. BENZODIAZEPINES [Suspect]
     Indication: DRUG USE FOR UNKNOWN INDICATION
  3. OPIOIDS [Suspect]
     Indication: DRUG USE FOR UNKNOWN INDICATION
  4. TENOFOVIR [Concomitant]
     Indication: HIV INFECTION
     Dates: start: 20030601
  5. STAVUDINE [Concomitant]
     Indication: HIV INFECTION
     Dates: start: 20030512
  6. LAMIVUDINE [Concomitant]
     Indication: HIV INFECTION
     Dates: start: 20030512, end: 20030601

REACTIONS (12)
  - ASCITES [None]
  - ATRIAL FIBRILLATION [None]
  - COAGULOPATHY [None]
  - GENERAL PHYSICAL HEALTH DETERIORATION [None]
  - HAEMORRHAGE [None]
  - HYPERKALAEMIA [None]
  - LACTIC ACIDOSIS [None]
  - METABOLIC DISORDER [None]
  - OVERDOSE [None]
  - PERITONITIS [None]
  - RHABDOMYOLYSIS [None]
  - UNEVALUABLE EVENT [None]
